FAERS Safety Report 16310938 (Version 2)
Quarter: 2020Q4

REPORT INFORMATION
  Report Type: Spontaneous
  Country: US (occurrence: US)
  Receive Date: 20190514
  Receipt Date: 20201028
  Transmission Date: 20210113
  Serious: Yes (Other)
  Sender: FDA-Public Use
  Company Number: US-ASTRAZENECA-2019SE67067

PATIENT
  Age: 17817 Day
  Sex: Male
  Weight: 55.3 kg

DRUGS (48)
  1. PRILOSEC OTC [Suspect]
     Active Substance: OMEPRAZOLE MAGNESIUM
     Indication: GASTROOESOPHAGEAL REFLUX DISEASE
     Route: 048
     Dates: start: 20040101, end: 20100101
  2. VITAMIN D [Concomitant]
     Active Substance: VITAMIN D NOS
     Indication: ROUTINE HEALTH MAINTENANCE
     Dates: start: 2012
  3. AMMONIUM LACTATE. [Concomitant]
     Active Substance: AMMONIUM LACTATE
  4. GABAPENTIN. [Concomitant]
     Active Substance: GABAPENTIN
  5. HUMALOG [Concomitant]
     Active Substance: INSULIN LISPRO
  6. NICOTINE. [Concomitant]
     Active Substance: NICOTINE
  7. LINZESS [Concomitant]
     Active Substance: LINACLOTIDE
  8. AMOXICILLIN. [Concomitant]
     Active Substance: AMOXICILLIN
  9. CETIRIZINE [Concomitant]
     Active Substance: CETIRIZINE HYDROCHLORIDE
  10. DIPHENHYDRAMINE. [Concomitant]
     Active Substance: DIPHENHYDRAMINE
  11. PREDNISONE. [Concomitant]
     Active Substance: PREDNISONE
  12. XARELTO [Concomitant]
     Active Substance: RIVAROXABAN
     Indication: HAEMORRHAGE URINARY TRACT
     Dates: start: 201605, end: 201801
  13. METOPROLOL SUCCINATE. [Concomitant]
     Active Substance: METOPROLOL SUCCINATE
     Indication: HYPERTENSION
     Dates: start: 201605, end: 201710
  14. LORAZEPAM. [Concomitant]
     Active Substance: LORAZEPAM
  15. VICTOZA [Concomitant]
     Active Substance: LIRAGLUTIDE
  16. COUMADIN [Concomitant]
     Active Substance: WARFARIN SODIUM
  17. CYCLOBENZAPRINE. [Concomitant]
     Active Substance: CYCLOBENZAPRINE
     Indication: MUSCLE RELAXANT THERAPY
     Dates: start: 201605, end: 201712
  18. CHANTIX [Concomitant]
     Active Substance: VARENICLINE TARTRATE
  19. LOSARTAN. [Concomitant]
     Active Substance: LOSARTAN
  20. PROAIR HFA [Concomitant]
     Active Substance: ALBUTEROL SULFATE
  21. LEVEMIR [Concomitant]
     Active Substance: INSULIN DETEMIR
  22. NITROGLYCERIN. [Concomitant]
     Active Substance: NITROGLYCERIN
  23. ASPIRIN. [Concomitant]
     Active Substance: ASPIRIN
  24. PRILOSEC [Suspect]
     Active Substance: OMEPRAZOLE MAGNESIUM
     Indication: GASTROOESOPHAGEAL REFLUX DISEASE
     Route: 065
     Dates: start: 20160128
  25. ATORVASTATIN [Concomitant]
     Active Substance: ATORVASTATIN
     Indication: BLOOD CHOLESTEROL ABNORMAL
     Dates: start: 201409, end: 201802
  26. FUROSEMIDE. [Concomitant]
     Active Substance: FUROSEMIDE
     Indication: DIURETIC THERAPY
     Dates: start: 201409, end: 201705
  27. MULTIVITAMIN [Concomitant]
     Active Substance: VITAMINS
     Indication: ROUTINE HEALTH MAINTENANCE
     Dates: start: 2012
  28. AZITHROMYCIN ANHYDROUS. [Concomitant]
     Active Substance: AZITHROMYCIN ANHYDROUS
  29. LEVOFLOXACIN. [Concomitant]
     Active Substance: LEVOFLOXACIN
  30. BENZONATATE. [Concomitant]
     Active Substance: BENZONATATE
  31. NYSTATIN. [Concomitant]
     Active Substance: NYSTATIN
  32. TRESIBA [Concomitant]
     Active Substance: INSULIN DEGLUDEC
  33. HUMULIN NOS [Concomitant]
     Active Substance: INSULIN HUMAN
  34. PIOGLITAZONE HCL [Concomitant]
     Active Substance: PIOGLITAZONE
     Indication: BLOOD DISORDER
     Dates: start: 201409, end: 201711
  35. FLUTICASONE. [Concomitant]
     Active Substance: FLUTICASONE
  36. ISOSORBIDE MONONITRATE. [Concomitant]
     Active Substance: ISOSORBIDE MONONITRATE
  37. CEPHALEXIN. [Concomitant]
     Active Substance: CEPHALEXIN
  38. ATROPINE. [Concomitant]
     Active Substance: ATROPINE
  39. NEURONTIN [Concomitant]
     Active Substance: GABAPENTIN
  40. PRILOSEC [Suspect]
     Active Substance: OMEPRAZOLE MAGNESIUM
     Indication: GASTROOESOPHAGEAL REFLUX DISEASE
     Route: 048
     Dates: start: 19970101, end: 20160101
  41. PEPCID [Concomitant]
     Active Substance: FAMOTIDINE
     Dates: start: 20140928, end: 20150709
  42. FAMOTIDINE. [Concomitant]
     Active Substance: FAMOTIDINE
     Dates: start: 20130509, end: 20170526
  43. NOVOLOG [Concomitant]
     Active Substance: INSULIN ASPART
  44. TAMSULOSIN [Concomitant]
     Active Substance: TAMSULOSIN
  45. TUMS [Concomitant]
     Active Substance: CALCIUM CARBONATE
     Dates: start: 201201, end: 201301
  46. CITALOPRAM [Concomitant]
     Active Substance: CITALOPRAM HYDROBROMIDE
  47. TOUJEO [Concomitant]
     Active Substance: INSULIN GLARGINE
  48. SILDENAFIL. [Concomitant]
     Active Substance: SILDENAFIL

REACTIONS (3)
  - Renal failure [Unknown]
  - Chronic kidney disease [Not Recovered/Not Resolved]
  - Acute kidney injury [Not Recovered/Not Resolved]

NARRATIVE: CASE EVENT DATE: 20140326
